FAERS Safety Report 19116411 (Version 1)
Quarter: 2021Q2

REPORT INFORMATION
  Report Type: Spontaneous
  Country: US (occurrence: US)
  Receive Date: 20210409
  Receipt Date: 20210409
  Transmission Date: 20210717
  Serious: Yes (Hospitalization, Disabling, Other)
  Sender: FDA-Public Use
  Company Number: NVSC2021US071900

PATIENT
  Sex: Female

DRUGS (13)
  1. TERIFLUNOMIDE. [Suspect]
     Active Substance: TERIFLUNOMIDE
     Indication: MULTIPLE SCLEROSIS
     Dosage: 14 MG, QD
     Route: 048
     Dates: start: 20140722, end: 20170806
  2. INTERFERON BETA?1A [Concomitant]
     Active Substance: INTERFERON BETA-1A
     Indication: PRODUCT USED FOR UNKNOWN INDICATION
     Dosage: UNK
     Route: 065
  3. FUROSEMIDE. [Concomitant]
     Active Substance: FUROSEMIDE
     Indication: PRODUCT USED FOR UNKNOWN INDICATION
     Dosage: UNK
     Route: 065
  4. O2 [Concomitant]
     Active Substance: OXYGEN
     Indication: PRODUCT USED FOR UNKNOWN INDICATION
     Dosage: UNK
     Route: 065
  5. ERGOCALCIFEROL. [Concomitant]
     Active Substance: ERGOCALCIFEROL
     Indication: PRODUCT USED FOR UNKNOWN INDICATION
     Dosage: UNK
     Route: 065
  6. FISH OIL [Concomitant]
     Active Substance: FISH OIL
     Indication: PRODUCT USED FOR UNKNOWN INDICATION
     Dosage: UNK
     Route: 065
  7. CIPROFLOXACIN. [Suspect]
     Active Substance: CIPROFLOXACIN
     Indication: EAR INFECTION
     Dosage: UNK
     Route: 048
     Dates: start: 201612, end: 201612
  8. GABAPENTIN. [Concomitant]
     Active Substance: GABAPENTIN
     Indication: PAIN
     Dosage: UNK
     Route: 065
  9. LEVOTHYROXINE. [Concomitant]
     Active Substance: LEVOTHYROXINE
     Indication: PRODUCT USED FOR UNKNOWN INDICATION
     Dosage: UNK
     Route: 065
  10. GILENYA [Suspect]
     Active Substance: FINGOLIMOD HYDROCHLORIDE
     Indication: MULTIPLE SCLEROSIS
     Dosage: UNK
     Route: 065
     Dates: start: 201708
  11. BACLOFEN. [Concomitant]
     Active Substance: BACLOFEN
     Indication: PRODUCT USED FOR UNKNOWN INDICATION
     Dosage: UNK
     Route: 065
  12. SIMVASTATIN. [Concomitant]
     Active Substance: SIMVASTATIN
     Indication: PRODUCT USED FOR UNKNOWN INDICATION
     Dosage: UNK
     Route: 065
  13. ESCITALOPRAM [Concomitant]
     Active Substance: ESCITALOPRAM OXALATE
     Indication: PRODUCT USED FOR UNKNOWN INDICATION
     Dosage: UNK
     Route: 065

REACTIONS (57)
  - Fatigue [Unknown]
  - Frustration tolerance decreased [Unknown]
  - Aggression [Unknown]
  - Fall [Unknown]
  - Sneezing [Unknown]
  - Abdominal pain upper [Unknown]
  - Blood bilirubin increased [Unknown]
  - Cartilage injury [Unknown]
  - Depressed mood [Unknown]
  - Vertigo [Recovering/Resolving]
  - Spinal deformity [Unknown]
  - Amnesia [Unknown]
  - Paraesthesia [Unknown]
  - Alopecia [Recovering/Resolving]
  - Arrhythmia [Recovered/Resolved]
  - Anxiety [Unknown]
  - Muscle disorder [Unknown]
  - Oropharyngeal pain [Recovered/Resolved]
  - Mental fatigue [Unknown]
  - Feeling of despair [Unknown]
  - Dizziness [Unknown]
  - Headache [Recovering/Resolving]
  - Nausea [Recovering/Resolving]
  - Aphasia [Unknown]
  - Memory impairment [Unknown]
  - Disturbance in attention [Unknown]
  - Laziness [Unknown]
  - Decreased activity [Unknown]
  - Asthenia [Recovered/Resolved]
  - Urinary incontinence [Unknown]
  - Nerve injury [Unknown]
  - Speech disorder [Unknown]
  - Muscle spasms [Unknown]
  - Ear infection [Unknown]
  - Product dose omission issue [Unknown]
  - Arthropathy [Recovered/Resolved]
  - Pain in extremity [Not Recovered/Not Resolved]
  - Hypoaesthesia [Unknown]
  - COVID-19 pneumonia [Unknown]
  - Dyspnoea [Unknown]
  - Multiple sclerosis relapse [Recovered/Resolved]
  - Vision blurred [Unknown]
  - Gait disturbance [Unknown]
  - Atrial fibrillation [Unknown]
  - Yawning [Unknown]
  - Retinal disorder [Unknown]
  - Emotional distress [Unknown]
  - Arthritis [Unknown]
  - Muscular weakness [Unknown]
  - Malaise [Unknown]
  - Hordeolum [Unknown]
  - Pruritus [Unknown]
  - Diarrhoea [Unknown]
  - Arthralgia [Unknown]
  - Gastric disorder [Unknown]
  - Sleep disorder [Unknown]
  - Carpal tunnel syndrome [Unknown]
